FAERS Safety Report 9388052 (Version 1)
Quarter: 2013Q3

REPORT INFORMATION
  Report Type: Spontaneous
  Country: US (occurrence: None)
  Receive Date: 20130703
  Receipt Date: 20130703
  Transmission Date: 20140515
  Serious: Yes (Other)
  Sender: FDA-Public Use
  Company Number: CMB-00112

PATIENT
  Sex: Male

DRUGS (1)
  1. CAMBIA [Suspect]
     Indication: MIGRAINE
     Dosage: ONE PACKET MIXED WITH WATER AS NEEDED, ORAL
     Dates: start: 2011, end: 201306

REACTIONS (5)
  - Skin exfoliation [None]
  - Blister [None]
  - Influenza like illness [None]
  - Urticaria [None]
  - Pyrexia [None]
